FAERS Safety Report 13366636 (Version 1)
Quarter: 2017Q1

REPORT INFORMATION
  Report Type: Report from Study
  Country: BR (occurrence: BR)
  Receive Date: 20170323
  Receipt Date: 20170323
  Transmission Date: 20170429
  Serious: Yes (Other)
  Sender: FDA-Public Use
  Company Number: BR-BIOGEN-2017BI00375410

PATIENT
  Sex: Female

DRUGS (3)
  1. TECFIDERA [Suspect]
     Active Substance: DIMETHYL FUMARATE
     Dosage: ON BREAKFAST AND DINNER
     Route: 048
  2. TECFIDERA [Suspect]
     Active Substance: DIMETHYL FUMARATE
     Route: 065
  3. TECFIDERA [Suspect]
     Active Substance: DIMETHYL FUMARATE
     Indication: MULTIPLE SCLEROSIS
     Dosage: ON BREAKFAST AND DINNER
     Route: 048
     Dates: start: 20170125

REACTIONS (4)
  - Hyperhidrosis [Unknown]
  - Underdose [Unknown]
  - Feeling hot [Not Recovered/Not Resolved]
  - Pancreatitis [Unknown]
